FAERS Safety Report 13827174 (Version 1)
Quarter: 2017Q3

REPORT INFORMATION
  Report Type: Spontaneous
  Country: US (occurrence: US)
  Receive Date: 20170802
  Receipt Date: 20170802
  Transmission Date: 20171127
  Serious: No
  Sender: FDA-Public Use
  Company Number: US-ROCHE-635553

PATIENT

DRUGS (1)
  1. BONIVA [Suspect]
     Active Substance: IBANDRONATE SODIUM
     Indication: PRODUCT USED FOR UNKNOWN INDICATION
     Dosage: DRUG BEING TAKEN FOR PAST ONE YEAR.
     Route: 065

REACTIONS (2)
  - Atrophic glossitis [Unknown]
  - Dysgeusia [Recovering/Resolving]
